FAERS Safety Report 19079369 (Version 1)
Quarter: 2021Q1

REPORT INFORMATION
  Report Type: Other
  Country: FR (occurrence: FR)
  Receive Date: 20210331
  Receipt Date: 20210331
  Transmission Date: 20210420
  Serious: Yes (Hospitalization, Other)
  Sender: FDA-Public Use
  Company Number: FR-VALIDUS PHARMACEUTICALS LLC-FR-2021VAL000290

PATIENT
  Age: 80 Year
  Sex: Female

DRUGS (5)
  1. FLAGYL [Suspect]
     Active Substance: METRONIDAZOLE\METRONIDAZOLE HYDROCHLORIDE
     Indication: PNEUMONIA
     Dosage: 500 MG, TID
     Route: 048
     Dates: start: 20120618
  2. CEFTRIAXONE. [Suspect]
     Active Substance: CEFTRIAXONE
     Indication: PNEUMONIA
     Dosage: 1 G, QD
     Route: 042
     Dates: start: 20120715
  3. PREVISCAN                          /00789001/ [Suspect]
     Active Substance: FLUINDIONE
     Indication: PRODUCT USE IN UNAPPROVED INDICATION
     Dosage: 15 MG, QD
     Route: 048
     Dates: start: 20120719
  4. PENTOXIFYLLINE. [Suspect]
     Active Substance: PENTOXIFYLLINE
     Indication: PRODUCT USED FOR UNKNOWN INDICATION
     Dosage: 15 MG, QD
     Route: 048
     Dates: end: 20120719
  5. CORTANCYL [Concomitant]
     Active Substance: PREDNISONE
     Indication: VASCULITIS
     Dosage: UNK
     Dates: start: 2002

REACTIONS (3)
  - International normalised ratio increased [Recovered/Resolved]
  - Rectal haemorrhage [Recovered/Resolved]
  - Drug interaction [Recovered/Resolved]

NARRATIVE: CASE EVENT DATE: 20120719
